FAERS Safety Report 9813413 (Version 1)
Quarter: 2014Q1

REPORT INFORMATION
  Report Type: Spontaneous
  Country: US (occurrence: None)
  Receive Date: 20140110
  Receipt Date: 20140110
  Transmission Date: 20141002
  Serious: Yes (Life-Threatening, Hospitalization)
  Sender: FDA-Public Use
  Company Number: None

PATIENT
  Age: 52 Year
  Sex: Male
  Weight: 83.92 kg

DRUGS (2)
  1. ATORVASTATIN [Suspect]
     Indication: BLOOD CHOLESTEROL INCREASED
     Dosage: TAKEN BY MOUTH
     Dates: start: 20120504, end: 20130220
  2. ATORVASTATIN [Suspect]
     Dosage: TAKEN BY MOUTH
     Dates: start: 20120504, end: 20130220

REACTIONS (8)
  - Supraventricular tachycardia [None]
  - Weight increased [None]
  - Heart rate increased [None]
  - Fatigue [None]
  - Somnolence [None]
  - Insomnia [None]
  - Abdominal discomfort [None]
  - Arrhythmia [None]
